FAERS Safety Report 14423742 (Version 1)
Quarter: 2018Q1

REPORT INFORMATION
  Report Type: Spontaneous
  Country: US (occurrence: US)
  Receive Date: 20180123
  Receipt Date: 20180123
  Transmission Date: 20180509
  Serious: No
  Sender: FDA-Public Use
  Company Number: US-BAYER-2018-013910

PATIENT
  Age: 57 Year
  Sex: Female

DRUGS (1)
  1. ULTRAVIST [Suspect]
     Active Substance: IOPROMIDE
     Indication: COMPUTERISED TOMOGRAM
     Dosage: UNK
     Route: 042

REACTIONS (2)
  - Dysphagia [None]
  - Dyspnoea [None]

NARRATIVE: CASE EVENT DATE: 20180116
